FAERS Safety Report 24582399 (Version 3)
Quarter: 2025Q2

REPORT INFORMATION
  Report Type: Report from Study
  Country: IN (occurrence: IN)
  Receive Date: 20241106
  Receipt Date: 20250429
  Transmission Date: 20250717
  Serious: Yes (Other)
  Sender: CIPLA
  Company Number: IN-CIPLA LTD.-2024IN12269

PATIENT

DRUGS (6)
  1. METOPROLOL SUCCINATE [Suspect]
     Active Substance: METOPROLOL SUCCINATE
     Indication: Blood pressure abnormal
     Route: 048
     Dates: start: 2023
  2. METOPROLOL SUCCINATE [Suspect]
     Active Substance: METOPROLOL SUCCINATE
     Indication: Angina pectoris
  3. METOPROLOL SUCCINATE [Suspect]
     Active Substance: METOPROLOL SUCCINATE
     Indication: Arrhythmia
  4. PANTOMAG [Concomitant]
     Indication: Product used for unknown indication
     Route: 065
  5. ROSUMAC GOLD [Concomitant]
     Indication: Product used for unknown indication
     Route: 065
  6. ROSEDAY GOLD [Concomitant]
     Indication: Product used for unknown indication
     Route: 065

REACTIONS (6)
  - Myocardial infarction [Not Recovered/Not Resolved]
  - Hypersomnia [Not Recovered/Not Resolved]
  - Increased appetite [Not Recovered/Not Resolved]
  - Asthenia [Not Recovered/Not Resolved]
  - Pain [Not Recovered/Not Resolved]
  - Blood pressure increased [Not Recovered/Not Resolved]

NARRATIVE: CASE EVENT DATE: 20230101
